FAERS Safety Report 10751078 (Version 1)
Quarter: 2015Q1

REPORT INFORMATION
  Report Type: Spontaneous
  Country: RO (occurrence: RO)
  Receive Date: 20150130
  Receipt Date: 20150130
  Transmission Date: 20150721
  Serious: Yes (Hospitalization, Other)
  Sender: FDA-Public Use
  Company Number: RO-RANBAXY-2015RR-91759

PATIENT
  Age: 64 Year
  Sex: Male

DRUGS (6)
  1. IBUPROFEN. [Suspect]
     Active Substance: IBUPROFEN
     Indication: PAIN
     Dosage: 200 MG, DAILY
     Route: 065
  2. PIROXICAM. [Interacting]
     Active Substance: PIROXICAM
     Indication: PAIN
     Dosage: 20 MG, DAILY
     Route: 065
  3. BISEPTOL [Interacting]
     Active Substance: SULFAMETHOXAZOLE\TRIMETHOPRIM
     Indication: URINARY TRACT INFECTION
     Dosage: 3 DF, DAILY
     Route: 065
  4. ALGOCALMIN [Suspect]
     Active Substance: METAMIZOLE SODIUM
     Indication: PAIN
     Dosage: 2 DF, DAILY
     Route: 065
  5. ANTINEVRALGIC [Interacting]
     Active Substance: ASPIRIN\CAFFEINE\PHENACETIN
     Indication: PAIN
     Dosage: 2 DF, DAILY
     Route: 065
  6. CELECOXIB. [Interacting]
     Active Substance: CELECOXIB
     Indication: PAIN
     Dosage: 200 MG, DAILY
     Route: 065

REACTIONS (2)
  - Drug interaction [Recovering/Resolving]
  - Rhabdomyolysis [Recovering/Resolving]
